FAERS Safety Report 7711435-3 (Version None)
Quarter: 2011Q3

REPORT INFORMATION
  Report Type: 
  Country: None (occurrence: None)
  Receive Date: 20110823
  Receipt Date: 20110815
  Transmission Date: 20111222
  Serious: Yes (Disabling)
  Sender: FDA-Public Use
  Company Number: 2011SP038228

PATIENT
  Age: 62 Year
  Sex: Female

DRUGS (2)
  1. IMPLANON [Suspect]
  2. IMPLANON [Suspect]
     Indication: CONTRACEPTION
     Dosage: 68 MG, SC
     Route: 058
     Dates: start: 20110624

REACTIONS (4)
  - IMPLANT SITE PAIN [None]
  - CONTUSION [None]
  - IMPLANT SITE HAEMORRHAGE [None]
  - INJECTED LIMB MOBILITY DECREASED [None]
